FAERS Safety Report 14309072 (Version 4)
Quarter: 2024Q4

REPORT INFORMATION
  Report Type: Spontaneous
  Country: FR (occurrence: FR)
  Receive Date: 20171220
  Receipt Date: 20241209
  Transmission Date: 20250115
  Serious: Yes (Death, Other)
  Sender: GLAXOSMITHKLINE
  Company Number: None

PATIENT

DRUGS (6)
  1. LAMOTRIGINE [Suspect]
     Active Substance: LAMOTRIGINE
     Indication: Suicide attempt
     Dosage: UNK
     Route: 065
  2. VENLAFAXINE [Suspect]
     Active Substance: VENLAFAXINE HYDROCHLORIDE
     Indication: Suicide attempt
     Dosage: UNK
     Route: 065
  3. PROPRANOLOL [Suspect]
     Active Substance: PROPRANOLOL HYDROCHLORIDE
     Indication: Suicide attempt
     Dosage: UNK
     Route: 065
  4. LOXAPINE [Suspect]
     Active Substance: LOXAPINE
     Indication: Suicide attempt
     Dosage: UNK
     Route: 065
  5. CYAMEMAZINE [Suspect]
     Active Substance: CYAMEMAZINE
     Indication: Suicide attempt
     Dosage: UNK
     Route: 065
  6. MIANSERIN [Suspect]
     Active Substance: MIANSERIN
     Indication: Suicide attempt
     Dosage: UNK
     Route: 065

REACTIONS (5)
  - Toxicity to various agents [Fatal]
  - Brain death [Fatal]
  - Cardiac arrest [Fatal]
  - Intentional overdose [Unknown]
  - Completed suicide [Fatal]
